FAERS Safety Report 8573218-4 (Version None)
Quarter: 2012Q3

REPORT INFORMATION
  Report Type: 
  Country: None (occurrence: None)
  Receive Date: 20120806
  Receipt Date: 20120726
  Transmission Date: 20120928
  Serious: Yes (Other)
  Sender: FDA-Public Use
  Company Number: US-ASTRAZENECA-2012SE53426

PATIENT
  Age: 73 Year
  Sex: Female

DRUGS (10)
  1. CALCIUM CARBONATE [Concomitant]
     Dosage: TWO AFTER EACH MEAL
     Route: 048
  2. CRESTOR [Suspect]
     Route: 048
  3. CALCIUM CARBONATE [Concomitant]
     Route: 048
  4. SYSTANE ULTRA [Concomitant]
     Dosage: 0.4-0.3%USE AS DIRECTED DAILY
  5. VYTORIN [Concomitant]
     Dosage: 10-20MG ONCE DAILY
     Route: 048
  6. PRILOSEC [Suspect]
     Route: 048
  7. ZYRTEC [Concomitant]
     Route: 048
  8. MYLANTA [Concomitant]
     Dosage: 200-200-20MG/5MG 1 TEASPOON WITH MEALS AND 2 TEASPOONS AT BEDTIME
     Route: 048
  9. NEXIUM [Suspect]
     Route: 048
  10. LANOXIN [Concomitant]
     Route: 048

REACTIONS (2)
  - BREAST CANCER FEMALE [None]
  - MULTIPLE ALLERGIES [None]
